FAERS Safety Report 15143582 (Version 1)
Quarter: 2018Q3

REPORT INFORMATION
  Report Type: Report from Study
  Country: CO (occurrence: CO)
  Receive Date: 20180713
  Receipt Date: 20180713
  Transmission Date: 20181010
  Serious: Yes (Death, Hospitalization)
  Sender: FDA-Public Use
  Company Number: CO-JNJFOC-20180713856

PATIENT
  Age: 65 Year
  Sex: Male
  Weight: 73 kg

DRUGS (1)
  1. STELARA [Suspect]
     Active Substance: USTEKINUMAB
     Indication: PSORIASIS
     Route: 058
     Dates: start: 20160905

REACTIONS (2)
  - Upper gastrointestinal haemorrhage [Fatal]
  - Hepatic cirrhosis [Fatal]

NARRATIVE: CASE EVENT DATE: 20180630
